FAERS Safety Report 23321100 (Version 1)
Quarter: 2023Q4

REPORT INFORMATION
  Report Type: Spontaneous
  Country: US (occurrence: US)
  Receive Date: 20231220
  Receipt Date: 20231220
  Transmission Date: 20240110
  Serious: Yes (Other)
  Sender: FDA-Public Use
  Company Number: US-SUN PHARMACEUTICAL INDUSTRIES LTD-2023R1-424249

PATIENT
  Age: 24 Year
  Sex: Male

DRUGS (4)
  1. DESMOPRESSIN [Suspect]
     Active Substance: DESMOPRESSIN
     Indication: Demyelination
     Dosage: UNK
     Route: 065
  2. DEXTROSE [Suspect]
     Active Substance: DEXTROSE\DEXTROSE MONOHYDRATE
     Indication: Demyelination
     Dosage: UNK
     Route: 065
  3. FOLIC ACID [Suspect]
     Active Substance: FOLIC ACID
     Indication: Demyelination
     Dosage: UNK
     Route: 065
  4. THIAMINE [Suspect]
     Active Substance: THIAMINE
     Indication: Demyelination
     Dosage: UNK
     Route: 065

REACTIONS (2)
  - Osmotic demyelination syndrome [Unknown]
  - Myelomalacia [Unknown]
